FAERS Safety Report 5133728-9 (Version None)
Quarter: 2006Q4

REPORT INFORMATION
  Report Type: 
  Country: None (occurrence: None)
  Receive Date: 20061024
  Receipt Date: 20061023
  Transmission Date: 20070319
  Serious: Yes (Other)
  Sender: FDA-Public Use
  Company Number: US-GLAXOSMITHKLINE-A0624488A

PATIENT
  Age: 84 Year
  Sex: Male

DRUGS (6)
  1. CITRUCEL CAPLETS [Suspect]
     Indication: CONSTIPATION
     Dosage: 2CAP TWICE PER DAY
     Route: 048
     Dates: start: 20060101
  2. COUMADIN [Concomitant]
  3. ATENOLOL [Concomitant]
  4. SYNTHROID [Concomitant]
  5. PRAVACHOL [Concomitant]
  6. VASOTEC [Concomitant]

REACTIONS (6)
  - ABDOMINAL PAIN [None]
  - DYSURIA [None]
  - ILL-DEFINED DISORDER [None]
  - INTESTINAL OBSTRUCTION [None]
  - MALAISE [None]
  - MOBILITY DECREASED [None]
